FAERS Safety Report 25579403 (Version 1)
Quarter: 2025Q3

REPORT INFORMATION
  Report Type: Spontaneous
  Country: US (occurrence: US)
  Receive Date: 20250718
  Receipt Date: 20250718
  Transmission Date: 20251021
  Serious: Yes (Hospitalization)
  Sender: MERCK SHARP & DOHME LLC
  Company Number: US-009507513-2310650

PATIENT
  Sex: Female

DRUGS (1)
  1. VERICIGUAT [Suspect]
     Active Substance: VERICIGUAT
     Route: 048

REACTIONS (1)
  - Hypertension [Unknown]
